FAERS Safety Report 21336139 (Version 1)
Quarter: 2022Q3

REPORT INFORMATION
  Report Type: Spontaneous
  Country: ES (occurrence: ES)
  Receive Date: 20220915
  Receipt Date: 20220915
  Transmission Date: 20221027
  Serious: Yes (Hospitalization, Other)
  Sender: FDA-Public Use
  Company Number: ES-NOVARTISPH-NVSC2022ES208077

PATIENT
  Age: 4 Year
  Sex: Male
  Weight: 19.5 kg

DRUGS (1)
  1. MEKINIST [Suspect]
     Active Substance: TRAMETINIB DIMETHYL SULFOXIDE
     Indication: Juvenile chronic myelomonocytic leukaemia
     Dosage: 0.5 MG, QD
     Route: 065

REACTIONS (4)
  - Pyrexia [Unknown]
  - Blast cell count increased [Unknown]
  - Thrombocytopenia [Unknown]
  - Product use in unapproved indication [Unknown]
